FAERS Safety Report 19531032 (Version 4)
Quarter: 2021Q4

REPORT INFORMATION
  Report Type: Spontaneous
  Country: DE (occurrence: DE)
  Receive Date: 20210713
  Receipt Date: 20211006
  Transmission Date: 20220303
  Serious: Yes (Hospitalization, Other)
  Sender: FDA-Public Use
  Company Number: DE-CELGENE-DEU-20210701247

PATIENT
  Age: 81 Year
  Sex: Male
  Weight: 83 kg

DRUGS (33)
  1. AZACITIDINE [Suspect]
     Active Substance: AZACITIDINE
     Indication: Myelodysplastic syndrome
     Dosage: 75 MILLIGRAM/SQ. METER
     Route: 058
     Dates: start: 20201214, end: 20210519
  2. VENETOCLAX [Suspect]
     Active Substance: VENETOCLAX
     Indication: Myelodysplastic syndrome
     Dosage: 400 MILLIGRAM
     Route: 048
     Dates: start: 20201214, end: 20210321
  3. VENETOCLAX [Suspect]
     Active Substance: VENETOCLAX
     Dosage: 50 MILLIGRAM
     Route: 048
     Dates: start: 20210510, end: 20210523
  4. PANTOPRAZOLE SODIUM [Concomitant]
     Active Substance: PANTOPRAZOLE SODIUM
     Indication: Prophylaxis
     Dosage: 20 MILLIGRAM
     Route: 048
     Dates: start: 20200902, end: 20210120
  5. PANTOPRAZOLE SODIUM [Concomitant]
     Active Substance: PANTOPRAZOLE SODIUM
     Indication: Gastritis
     Dosage: 80 MILLIGRAM
     Route: 065
     Dates: start: 20210121
  6. VITAMIN D [Concomitant]
     Active Substance: VITAMIN D NOS
     Indication: Vitamin D deficiency
     Dosage: 1000 IU (INTERNATIONAL UNIT)
     Route: 048
     Dates: start: 20200813
  7. Prostagutt [Concomitant]
     Indication: Benign prostatic hyperplasia
     Dosage: 160/120 MILLIGRAM
     Route: 065
     Dates: start: 20101215
  8. LUTEIN [Concomitant]
     Active Substance: LUTEIN
     Indication: Dry eye
     Dosage: 10 MILLIGRAM
     Route: 065
     Dates: start: 2012
  9. CEFUROXIME AXETIL [Concomitant]
     Active Substance: CEFUROXIME AXETIL
     Indication: Infection prophylaxis
     Dosage: 500 MILLIGRAM
     Route: 048
     Dates: start: 20201214, end: 20210118
  10. CEFUROXIME AXETIL [Concomitant]
     Active Substance: CEFUROXIME AXETIL
     Dosage: 500 MILLIGRAM
     Route: 048
     Dates: start: 20210222, end: 20210301
  11. CEFUROXIME AXETIL [Concomitant]
     Active Substance: CEFUROXIME AXETIL
     Dosage: 500 MILLIGRAM
     Route: 048
     Dates: start: 20210329
  12. ALLOPURINOL [Concomitant]
     Active Substance: ALLOPURINOL
     Indication: Prophylactic chemotherapy
     Dosage: 100 MILLIGRAM
     Route: 048
     Dates: start: 20201214, end: 20210118
  13. ASPIRIN [Concomitant]
     Active Substance: ASPIRIN
     Indication: Coronary artery disease
     Dosage: 100 MILLIGRAM
     Route: 048
     Dates: start: 20210111, end: 20210130
  14. ASPIRIN [Concomitant]
     Active Substance: ASPIRIN
     Dosage: 100 MILLIGRAM
     Route: 048
     Dates: start: 20210201, end: 20210208
  15. ASPIRIN [Concomitant]
     Active Substance: ASPIRIN
     Dosage: 100 MILLIGRAM
     Route: 048
     Dates: start: 20210301
  16. ASPIRIN [Concomitant]
     Active Substance: ASPIRIN
     Dosage: 100 MILLIGRAM
     Route: 048
     Dates: start: 20210411
  17. MAGALDRATE [Concomitant]
     Active Substance: MAGALDRATE
     Indication: Gastritis
     Route: 048
     Dates: start: 20210121
  18. POSACONAZOLE [Concomitant]
     Active Substance: POSACONAZOLE
     Indication: Antifungal prophylaxis
     Dosage: 900 MILLIGRAM
     Route: 048
     Dates: start: 20210201, end: 20210301
  19. POSACONAZOLE [Concomitant]
     Active Substance: POSACONAZOLE
     Indication: Infection prophylaxis
     Dosage: 900 MILLIGRAM
     Route: 048
     Dates: start: 20210329, end: 20210406
  20. POSACONAZOLE [Concomitant]
     Active Substance: POSACONAZOLE
     Indication: Neutropenic sepsis
     Dosage: 900 MILLIGRAM
     Route: 048
     Dates: start: 20210409
  21. POSACONAZOLE [Concomitant]
     Active Substance: POSACONAZOLE
     Dosage: 900 MILLIGRAM
     Route: 048
     Dates: start: 20210510
  22. Bifidobacterium and lactobacillus [Concomitant]
     Indication: Supplementation therapy
     Dosage: 1 TABLET
     Route: 048
     Dates: start: 20201230
  23. Granisetron beta [Concomitant]
     Indication: Prophylaxis of nausea and vomiting
     Route: 048
     Dates: start: 20201214
  24. Hydrating wetting drops for eyes [Concomitant]
     Indication: Dry eye
     Dosage: 1 DROPS
     Route: 047
     Dates: start: 20200502
  25. TORSEMIDE [Concomitant]
     Active Substance: TORSEMIDE
     Indication: Oedema peripheral
     Dosage: 5 MILLIGRAM
     Route: 048
     Dates: start: 20210301
  26. TORSEMIDE [Concomitant]
     Active Substance: TORSEMIDE
     Dosage: 10 MILLIGRAM
     Route: 048
     Dates: start: 20210412
  27. POTASSIUM CHLORIDE [Concomitant]
     Active Substance: POTASSIUM CHLORIDE
     Indication: Hypokalaemia
     Dosage: 600 MILLIGRAM
     Route: 048
     Dates: start: 20210301
  28. POTASSIUM CHLORIDE [Concomitant]
     Active Substance: POTASSIUM CHLORIDE
     Dosage: 600 MILLIGRAM
     Route: 048
     Dates: start: 20210410
  29. TAMSULOSIN [Concomitant]
     Active Substance: TAMSULOSIN
     Indication: Benign prostatic hyperplasia
     Dosage: .4 MILLIGRAM
     Route: 048
     Dates: start: 20210406, end: 20210406
  30. TAMSULOSIN [Concomitant]
     Active Substance: TAMSULOSIN
     Dosage: .4 MILLIGRAM
     Route: 048
     Dates: start: 20210411
  31. NOXAFIL [Concomitant]
     Active Substance: POSACONAZOLE
     Indication: Neutropenic sepsis
     Dosage: MG/250ML/H
     Route: 041
     Dates: start: 20210407
  32. ELECTROLYTES NOS\MINERALS [Concomitant]
     Active Substance: ELECTROLYTES NOS\MINERALS
     Indication: Neutropenic sepsis
     Route: 041
     Dates: start: 20210407
  33. AMPHO-MORONAL [Concomitant]
     Active Substance: AMPHOTERICIN B
     Indication: Mucosal infection
     Dosage: 30 MILLIGRAM
     Route: 048
     Dates: start: 20210415

REACTIONS (1)
  - Gastric mucosa erythema [Recovered/Resolved]

NARRATIVE: CASE EVENT DATE: 20210628
